FAERS Safety Report 8537225-X (Version None)
Quarter: 2012Q3

REPORT INFORMATION
  Report Type: 
  Country: None (occurrence: None)
  Receive Date: 20120725
  Receipt Date: 20120719
  Transmission Date: 20120928
  Serious: Yes (Life-Threatening, Hospitalization)
  Sender: FDA-Public Use
  Company Number: IT-ASTRAZENECA-2012SE50957

PATIENT
  Age: 16947 Day
  Sex: Female

DRUGS (4)
  1. SEROQUEL [Suspect]
     Dosage: 60 DF SINGLE ADMINISTRATION
     Route: 048
     Dates: start: 20120717, end: 20120717
  2. LYRICA [Suspect]
     Dosage: 28 DF, SINGLE ADMINISTRATION
     Route: 048
     Dates: start: 20120717, end: 20120717
  3. EFFEXOR [Suspect]
     Dosage: 7 DF, SINGLE ADMINISTRATION
     Route: 048
     Dates: start: 20120717, end: 20120717
  4. EN [Suspect]
     Dosage: 20 ML WITH THE STRENGTH OF 1 MG/ML, SINGLE ADMINISTRATION
     Route: 048
     Dates: start: 20120717, end: 20120717

REACTIONS (2)
  - SUICIDE ATTEMPT [None]
  - SOPOR [None]
